FAERS Safety Report 13555107 (Version 1)
Quarter: 2017Q2

REPORT INFORMATION
  Report Type: Spontaneous
  Country: CH (occurrence: CH)
  Receive Date: 20170517
  Receipt Date: 20170517
  Transmission Date: 20170830
  Serious: Yes (Hospitalization)
  Sender: FDA-Public Use
  Company Number: CH-ASTRAZENECA-2017SE49661

PATIENT
  Age: 1058 Month
  Sex: Male

DRUGS (10)
  1. XARELTO [Suspect]
     Active Substance: RIVAROXABAN
     Route: 048
     Dates: start: 201611, end: 20170412
  2. PREDNISONE. [Concomitant]
     Active Substance: PREDNISONE
     Dates: start: 20170325, end: 20170402
  3. ASPIRIN CARDIO [Concomitant]
     Active Substance: ASPIRIN
     Dates: end: 201611
  4. AZITHROMYCIN ANHYDROUS. [Concomitant]
     Active Substance: AZITHROMYCIN ANHYDROUS
     Dates: end: 201611
  5. LIXIANA [Concomitant]
     Active Substance: EDOXABAN TOSYLATE
     Dates: start: 20170412, end: 20170423
  6. DOXYCYCLINE. [Suspect]
     Active Substance: DOXYCYCLINE
     Dosage: AGAIN FIRST WEEK OF FEB-2017 AND FIRST WEEK MAR-2017
     Route: 048
  7. AERIUS [Concomitant]
     Active Substance: DESLORATADINE
     Dates: start: 20170325, end: 20170402
  8. CORDARONE [Suspect]
     Active Substance: AMIODARONE HYDROCHLORIDE
     Route: 048
     Dates: start: 201611, end: 20170412
  9. DOXYCYCLINE. [Suspect]
     Active Substance: DOXYCYCLINE
     Route: 048
     Dates: start: 20170101, end: 20170107
  10. VANNAIR [Suspect]
     Active Substance: BUDESONIDE\FORMOTEROL FUMARATE DIHYDRATE
     Dosage: 100/6, TWO TIMES A DAY
     Route: 055
     Dates: start: 201611, end: 20170423

REACTIONS (3)
  - Rash erythematous [Not Recovered/Not Resolved]
  - Dysphonia [Recovered/Resolved]
  - Odynophagia [Recovered/Resolved]

NARRATIVE: CASE EVENT DATE: 201702
